FAERS Safety Report 14691833 (Version 1)
Quarter: 2018Q1

REPORT INFORMATION
  Report Type: Other
  Country: GB (occurrence: GB)
  Receive Date: 20180329
  Receipt Date: 20180329
  Transmission Date: 20180509
  Serious: No
  Sender: FDA-Public Use
  Company Number: GB-LUPIN PHARMACEUTICALS INC.-2018-00577

PATIENT
  Age: 48 Year
  Sex: Male
  Weight: 98 kg

DRUGS (20)
  1. PARACETAMOL [Concomitant]
     Active Substance: ACETAMINOPHEN
     Indication: ILL-DEFINED DISORDER
     Dosage: TWO TO BE TAKEN EVERY 4-6 HOURS UP TO FOUR TIME
     Route: 065
     Dates: start: 20140109
  2. BUPRENORPHINE. [Concomitant]
     Active Substance: BUPRENORPHINE
     Indication: ILL-DEFINED DISORDER
     Dosage: USE ONCE A WEEK
     Route: 065
     Dates: start: 20111205
  3. OMEPRAZOLE. [Concomitant]
     Active Substance: OMEPRAZOLE
     Indication: ILL-DEFINED DISORDER
     Dosage: 1 DAILY POM  (D/R: )
     Route: 065
     Dates: start: 20001018, end: 20171221
  4. ACETYLSALICYLIC ACID [Concomitant]
     Active Substance: ASPIRIN
     Indication: ILL-DEFINED DISORDER
     Dosage: ONE TO BE TAKEN EACH DAY (ASD BY HOSPITAL)
     Route: 065
     Dates: start: 20151217
  5. LANSOPRAZOLE. [Concomitant]
     Active Substance: LANSOPRAZOLE
     Indication: ULCER
     Dosage: TAKE ONE DAILY FOR ULCERS/INDIGESTION.
     Route: 065
     Dates: start: 20100429
  6. ACIDEX                             /00397401/ [Concomitant]
     Indication: ILL-DEFINED DISORDER
     Dosage: AS DIRECTED
     Route: 065
     Dates: start: 20011114, end: 20171221
  7. SALBUTAMOL [Concomitant]
     Active Substance: ALBUTEROL
     Indication: ILL-DEFINED DISORDER
     Dosage: INHALE ONE OR TWO DOSES WHEN REQUIRED TO RELIEV
     Route: 055
     Dates: start: 20171221
  8. ISPAGHULA EXTRACT\PSYLLIUM [Concomitant]
     Active Substance: HERBALS\PLANTAGO OVATA SEED\PLANTAGO SEED
     Indication: ILL-DEFINED DISORDER
     Dosage: UNK UNK, QD
     Route: 065
     Dates: start: 20120203, end: 20171221
  9. QUETIAPINE. [Concomitant]
     Active Substance: QUETIAPINE
     Indication: ILL-DEFINED DISORDER
     Dosage: UNK UNK, QD
     Route: 065
     Dates: start: 20151112
  10. ATORVASTATIN [Concomitant]
     Active Substance: ATORVASTATIN
     Indication: BLOOD CHOLESTEROL INCREASED
     Dosage: UNK, QD (TAKE ONE DAILY TO LOWER CHOLESTEROL)
     Route: 065
     Dates: start: 20151012
  11. QVAR [Concomitant]
     Active Substance: BECLOMETHASONE DIPROPIONATE
     Indication: ILL-DEFINED DISORDER
     Dosage: UNK, BID (TWO PUFFS TWICE A DAY )
     Route: 065
     Dates: start: 20120925
  12. SERTRALINE [Suspect]
     Active Substance: SERTRALINE HYDROCHLORIDE
     Indication: ILL-DEFINED DISORDER
     Dosage: UNK
     Route: 065
     Dates: start: 20120403
  13. PREGABALIN. [Concomitant]
     Active Substance: PREGABALIN
     Indication: ILL-DEFINED DISORDER
     Dosage: 1 DF, TID
     Route: 065
     Dates: start: 20100204
  14. BISOPROLOL [Concomitant]
     Active Substance: BISOPROLOL
     Indication: CARDIAC DISORDER
     Dosage: 1 DF, QD (TAKE ONE DAILY TO REDUCE HEART STRAIN/FAILURE)
     Route: 065
     Dates: start: 20160106
  15. VENTOLIN [Concomitant]
     Active Substance: ALBUTEROL SULFATE
     Indication: ILL-DEFINED DISORDER
     Dosage: UNK, PRN (TWO PUFFS TO BE INHALED AS REQUIRED)
     Route: 065
     Dates: start: 20120925, end: 20171221
  16. GLYCERYL TRINITRATE [Concomitant]
     Active Substance: NITROGLYCERIN
     Indication: ILL-DEFINED DISORDER
     Dosage: UNK UNK, PRN (SPRAY ONE OR TWO PUFFS UNDER THE TONGUE AS NEEDED)
     Route: 060
     Dates: start: 20171221
  17. BETAMETHASONE VALERATE. [Concomitant]
     Active Substance: BETAMETHASONE VALERATE
     Indication: ILL-DEFINED DISORDER
     Dosage: APPLY THINLY TWICE A DAY
     Route: 065
     Dates: start: 20140815
  18. CASSIA SENNA [Concomitant]
     Active Substance: HERBALS\SENNOSIDES
     Indication: ILL-DEFINED DISORDER
     Dosage: TWO TO BE TAKEN AT NIGHT
     Route: 065
     Dates: start: 20120202
  19. LANSOPRAZOLE. [Concomitant]
     Active Substance: LANSOPRAZOLE
     Indication: DYSPEPSIA
  20. PROPRANOLOL [Concomitant]
     Active Substance: PROPRANOLOL HYDROCHLORIDE
     Indication: ILL-DEFINED DISORDER
     Dosage: 1 DAILY POM  (D/R: )
     Route: 065
     Dates: start: 20010425, end: 20171221

REACTIONS (3)
  - Hypersensitivity [Unknown]
  - Abdominal pain [Unknown]
  - Abdominal discomfort [Unknown]
